FAERS Safety Report 6508354-7 (Version None)
Quarter: 2009Q4

REPORT INFORMATION
  Report Type: 
  Country: None (occurrence: None)
  Receive Date: 20091221
  Receipt Date: 20081111
  Transmission Date: 20100525
  Serious: No
  Sender: FDA-Public Use
  Company Number: US-ASTRAZENECA-2008UW23737

PATIENT
  Age: 58 Year
  Sex: Female
  Weight: 68 kg

DRUGS (3)
  1. CRESTOR [Suspect]
     Indication: BLOOD CHOLESTEROL INCREASED
     Route: 048
     Dates: start: 20081001, end: 20080101
  2. FLEXERIL [Concomitant]
  3. CARDENE [Concomitant]

REACTIONS (5)
  - APPETITE DISORDER [None]
  - ARTHRALGIA [None]
  - HEADACHE [None]
  - MYALGIA [None]
  - PAIN IN EXTREMITY [None]
